FAERS Safety Report 4399164-8 (Version None)
Quarter: 2004Q3

REPORT INFORMATION
  Report Type: 
  Country: None (occurrence: None)
  Receive Date: 20040715
  Receipt Date: 20040715
  Transmission Date: 20050211
  Serious: Yes (Hospitalization)
  Sender: FDA-Public Use
  Company Number: None

PATIENT
  Age: 42 Year
  Sex: Female

DRUGS (3)
  1. INTERFERON [Suspect]
     Indication: HEPATITIS C
     Dates: start: 20030901, end: 20040604
  2. LEXAPRO [Suspect]
     Indication: DEPRESSION
     Dosage: 10 MG DAILY ORAL
     Route: 048
     Dates: start: 20030901, end: 20040604
  3. LEXAPRO [Suspect]
     Indication: PROPHYLAXIS
     Dosage: 10 MG DAILY ORAL
     Route: 048
     Dates: start: 20030901, end: 20040604

REACTIONS (11)
  - ANHEDONIA [None]
  - ANOREXIA [None]
  - ASTHENIA [None]
  - FEELING ABNORMAL [None]
  - IRRITABILITY [None]
  - LIBIDO DECREASED [None]
  - SELF ESTEEM DECREASED [None]
  - SOCIAL AVOIDANT BEHAVIOUR [None]
  - SUICIDAL IDEATION [None]
  - SUICIDE ATTEMPT [None]
  - WEIGHT DECREASED [None]
